FAERS Safety Report 23787440 (Version 1)
Quarter: 2024Q2

REPORT INFORMATION
  Report Type: Spontaneous
  Country: EG (occurrence: EG)
  Receive Date: 20240426
  Receipt Date: 20240426
  Transmission Date: 20240716
  Serious: Yes (Hospitalization)
  Sender: FDA-Public Use
  Company Number: EG-MSNLABS-2024MSNLIT00962

PATIENT

DRUGS (2)
  1. PREGABALIN [Suspect]
     Active Substance: PREGABALIN
     Indication: Fibromyalgia
     Dosage: 75 MG TWICE DAILY
     Route: 065
  2. PREGABALIN [Suspect]
     Active Substance: PREGABALIN
     Dosage: INCREASED THE DOSE TO 150 MG TWICE PER DAY
     Route: 065

REACTIONS (2)
  - Intentional product use issue [Unknown]
  - Parkinsonism [Recovered/Resolved]
